FAERS Safety Report 13040808 (Version 2)
Quarter: 2021Q3

REPORT INFORMATION
  Report Type: Report from Study
  Country: CA (occurrence: CA)
  Receive Date: 20161219
  Receipt Date: 20210903
  Transmission Date: 20211014
  Serious: Yes (Other)
  Sender: FDA-Public Use
  Company Number: CA-JNJFOC-20161215163

PATIENT
  Age: 41 Year
  Sex: Female
  Weight: 61.5 kg

DRUGS (2)
  1. STELARA [Suspect]
     Active Substance: USTEKINUMAB
     Indication: PSORIASIS
     Route: 058
     Dates: start: 20060529
  2. STELARA [Suspect]
     Active Substance: USTEKINUMAB

REACTIONS (4)
  - Incision site complication [Recovered/Resolved]
  - Inappropriate schedule of product administration [Unknown]
  - Hysterectomy [Unknown]
  - Oophorectomy [Unknown]

NARRATIVE: CASE EVENT DATE: 2016
